FAERS Safety Report 20130700 (Version 1)
Quarter: 2021Q4

REPORT INFORMATION
  Report Type: Spontaneous
  Country: US (occurrence: None)
  Receive Date: 20211130
  Receipt Date: 20211130
  Transmission Date: 20220303
  Serious: Yes (Other)
  Sender: FDA-Public Use
  Company Number: None

PATIENT
  Sex: Male

DRUGS (10)
  1. IMATINIB MESYLATE [Suspect]
     Active Substance: IMATINIB MESYLATE
     Indication: Gastrointestinal stromal tumour
     Dosage: FREQUENCY : DAILY;?
     Route: 048
     Dates: start: 20210427
  2. ASPIRIN [Concomitant]
     Active Substance: ASPIRIN
  3. CINNAMON CAP [Concomitant]
  4. COENZYME Q10 [Concomitant]
     Active Substance: DIETARY SUPPLEMENT\UBIDECARENONE
  5. FOLIC ACID TAB [Concomitant]
  6. IRON [Concomitant]
     Active Substance: IRON
  7. KP VITAMIN D [Concomitant]
  8. MAGNESIUM [Concomitant]
     Active Substance: MAGNESIUM
  9. OMEGA-3 ACIDS [Suspect]
     Active Substance: OMEGA-3 FATTY ACIDS
  10. PROBIOTIC CAP [Concomitant]

REACTIONS (3)
  - Diarrhoea [None]
  - Muscle spasms [None]
  - Drug intolerance [None]
